FAERS Safety Report 19139872 (Version 2)
Quarter: 2021Q2

REPORT INFORMATION
  Report Type: Spontaneous
  Country: JP (occurrence: JP)
  Receive Date: 20210415
  Receipt Date: 20210511
  Transmission Date: 20210717
  Serious: Yes (Other)
  Sender: FDA-Public Use
  Company Number: JP-TEVA-2021-JP-1900039

PATIENT
  Age: 9 Decade
  Sex: Male

DRUGS (2)
  1. ALBUMIN?BOUND PACLITAXEL [Suspect]
     Active Substance: PACLITAXEL
     Indication: LUNG SQUAMOUS CELL CARCINOMA STAGE IV
     Dosage: RECEIVED A TOTAL OF 3 COURSES
     Route: 065
  2. CARBOPLATIN. [Suspect]
     Active Substance: CARBOPLATIN
     Indication: LUNG SQUAMOUS CELL CARCINOMA STAGE IV
     Dosage: RECEIVED A TOTAL OF 3 COURSES
     Route: 065

REACTIONS (2)
  - Respiratory failure [Unknown]
  - Interstitial lung disease [Unknown]
